FAERS Safety Report 12371641 (Version 5)
Quarter: 2016Q3

REPORT INFORMATION
  Report Type: Spontaneous
  Country: DE (occurrence: DE)
  Receive Date: 20160516
  Receipt Date: 20160816
  Transmission Date: 20161109
  Serious: Yes (Life-Threatening, Hospitalization, Other)
  Sender: FDA-Public Use
  Company Number: PHHY2016DE066837

PATIENT
  Age: 55 Year
  Sex: Female

DRUGS (2)
  1. GLIVEC [Suspect]
     Active Substance: IMATINIB MESYLATE
     Dosage: UNK
     Dates: start: 20160517
  2. GLIVEC [Suspect]
     Active Substance: IMATINIB MESYLATE
     Indication: CHRONIC MYELOID LEUKAEMIA
     Dosage: 400 MG, QD
     Route: 065
     Dates: start: 201601, end: 201604

REACTIONS (7)
  - Coma [Recovered/Resolved]
  - Apallic syndrome [Recovering/Resolving]
  - Gastritis [Recovered/Resolved]
  - Streptococcal sepsis [Recovered/Resolved]
  - Encephalitis [Recovered/Resolved]
  - Meningitis [Recovered/Resolved]
  - Extremity necrosis [Not Recovered/Not Resolved]

NARRATIVE: CASE EVENT DATE: 20160202
